FAERS Safety Report 4332665-7 (Version None)
Quarter: 2004Q1

REPORT INFORMATION
  Report Type: 
  Country: None (occurrence: None)
  Receive Date: 20040330
  Receipt Date: 20040322
  Transmission Date: 20041129
  Serious: Yes (Other)
  Sender: FDA-Public Use
  Company Number: 200410890GDS

PATIENT
  Sex: Female

DRUGS (2)
  1. CIPROXAN (CIPROFLOXACIN) [Suspect]
     Indication: PSEUDOMONAS INFECTION
     Dosage: ORAL
     Route: 048
  2. CIPROXAN (CIPROFLOXACIN) [Suspect]
     Indication: SKIN INFECTION
     Dosage: ORAL
     Route: 048

REACTIONS (4)
  - BALANCE DISORDER [None]
  - HEARING IMPAIRED [None]
  - RASH [None]
  - VESTIBULAR DISORDER [None]
